FAERS Safety Report 6673657-2 (Version None)
Quarter: 2010Q2

REPORT INFORMATION
  Report Type: 
  Country: None (occurrence: None)
  Receive Date: 20100408
  Receipt Date: 20100405
  Transmission Date: 20101027
  Serious: Yes (Death)
  Sender: FDA-Public Use
  Company Number: US-CELGENEUS-163-21880-10020645

PATIENT
  Sex: Male

DRUGS (4)
  1. REVLIMID [Suspect]
     Indication: MULTIPLE MYELOMA
     Route: 048
     Dates: start: 20090819
  2. REVLIMID [Suspect]
     Dosage: 10MG-25MG
     Route: 048
     Dates: start: 20090601
  3. REVLIMID [Suspect]
     Dosage: 10MG-25MG
     Route: 048
     Dates: start: 20081201
  4. REVLIMID [Suspect]
     Dosage: 10MG-15NG-25MG
     Route: 048
     Dates: start: 20080601

REACTIONS (3)
  - MALIGNANT NEOPLASM PROGRESSION [None]
  - MULTIPLE MYELOMA [None]
  - RESPIRATORY ARREST [None]
